FAERS Safety Report 10548531 (Version 1)
Quarter: 2014Q4

REPORT INFORMATION
  Report Type: Spontaneous
  Country: US (occurrence: None)
  Receive Date: 20141024
  Receipt Date: 20141024
  Transmission Date: 20150529
  Serious: Yes (Other)
  Sender: FDA-Public Use
  Company Number: COR_00118_2014

PATIENT

DRUGS (3)
  1. DOVITINIB [Suspect]
     Active Substance: DOVITINIB LACTATE
     Indication: NEOPLASM
     Route: 048
  2. GEMCITABINE [Suspect]
     Active Substance: GEMCITABINE\GEMCITABINE HYDROCHLORIDE
     Indication: NEOPLASM
     Dosage: ON DAY 1 OF A 21 DAY CYCLE
     Route: 042
  3. CARBOPLATIN. [Suspect]
     Active Substance: CARBOPLATIN
     Indication: NEOPLASM
     Dosage: AUC 5 ON DAY 1 OF A 21 DAY CYCLE, 4 CYCLES?

REACTIONS (4)
  - Neutropenia [None]
  - Fatigue [None]
  - Dyspnoea [None]
  - Thrombocytopenia [None]
